FAERS Safety Report 9375849 (Version 2)
Quarter: 2013Q3

REPORT INFORMATION
  Report Type: Spontaneous
  Country: US (occurrence: US)
  Receive Date: 20130628
  Receipt Date: 20130723
  Transmission Date: 20140515
  Serious: Yes (Hospitalization)
  Sender: FDA-Public Use
  Company Number: US-PFIZER INC-2013192949

PATIENT
  Age: 60 Year
  Sex: Female
  Weight: 132 kg

DRUGS (17)
  1. LYRICA [Suspect]
     Indication: NEUROPATHY PERIPHERAL
     Dosage: 100 MG, 3X/DAY
     Dates: start: 2007
  2. LYRICA [Suspect]
     Indication: PAIN
  3. CYMBALTA [Concomitant]
     Indication: NEUROPATHY PERIPHERAL
     Dosage: 60 MG, 2X/DAY
  4. LANTUS [Concomitant]
     Indication: DIABETES MELLITUS
     Dosage: 85 IU, UNK
  5. GLUCOPHAGE [Concomitant]
     Indication: DIABETES MELLITUS
     Dosage: 1000 MG, 2X/DAY
  6. LIPITOR [Concomitant]
     Dosage: 80 MG, UNK
  7. VESICARE [Concomitant]
     Indication: URINARY INCONTINENCE
     Dosage: 10 MG, UNK
  8. CELEBREX [Concomitant]
     Indication: ARTHRITIS
     Dosage: 200 MG, 2X/DAY
  9. PRAMIPEXOLE DIHYDROCHLORIDE [Concomitant]
     Indication: RESTLESS LEGS SYNDROME
     Dosage: 0.5 MG, UNK
  10. PROTONIX [Concomitant]
     Indication: GASTROOESOPHAGEAL REFLUX DISEASE
     Dosage: 40 MG, UNK
  11. ASPIRIN [Concomitant]
     Dosage: 81 MG, UNK
  12. CENTRUM ULTRA WOMENS [Concomitant]
     Indication: VITAMIN SUPPLEMENTATION
     Dosage: UNK
  13. LOSARTAN POTASSIUM [Concomitant]
     Indication: HYPERTENSION
     Dosage: 100 MG, UNK
  14. VERAPAMIL [Concomitant]
     Dosage: UNK
  15. FLECAINIDE [Concomitant]
     Dosage: UNK
  16. FLECAINIDE [Concomitant]
     Dosage: 300 MG, 1X/DAY
  17. LASIX [Concomitant]
     Dosage: 20 MG, AS NEEDED

REACTIONS (12)
  - Cardiac disorder [Unknown]
  - Heart rate decreased [Unknown]
  - Intervertebral disc protrusion [Unknown]
  - Presyncope [Unknown]
  - Sinus bradycardia [Unknown]
  - Sleep disorder [Unknown]
  - Asthenia [Unknown]
  - Gait disturbance [Unknown]
  - Feeling abnormal [Unknown]
  - Dyspnoea [Unknown]
  - Walking aid user [Unknown]
  - Hypertension [Unknown]
